FAERS Safety Report 15300666 (Version 1)
Quarter: 2018Q3

REPORT INFORMATION
  Report Type: Spontaneous
  Country: US (occurrence: US)
  Receive Date: 20180808
  Receipt Date: 20180808
  Transmission Date: 20181010
  Serious: Yes (Other)
  Sender: FDA-Public Use
  Company Number: None

PATIENT
  Age: 52 Year
  Sex: Male
  Weight: 110.68 kg

DRUGS (13)
  1. DICYCLOMINE 20MG TABLET [Suspect]
     Active Substance: DICYCLOMINE HYDROCHLORIDE
     Indication: ABDOMINAL DISCOMFORT
     Dosage: ?          QUANTITY:40;OTHER FREQUENCY:4;?
     Route: 048
     Dates: start: 201806, end: 201807
  2. HYDROXYZINE [Concomitant]
     Active Substance: HYDROXYZINE HYDROCHLORIDE
  3. METOPROLOL ER [Concomitant]
     Active Substance: METOPROLOL SUCCINATE
  4. HYDROCODINE [Concomitant]
  5. C?PAP MACHINE [Concomitant]
     Active Substance: DEVICE
  6. BUPRINION [Concomitant]
  7. CENTRY ADULT VITA [Concomitant]
  8. GABAPENTIN. [Concomitant]
     Active Substance: GABAPENTIN
  9. DICYCLOMINE 20MG TABLET [Suspect]
     Active Substance: DICYCLOMINE HYDROCHLORIDE
     Indication: DYSPEPSIA
     Dosage: ?          QUANTITY:40;OTHER FREQUENCY:4;?
     Route: 048
     Dates: start: 201806, end: 201807
  10. OMEPRAZOLE. [Concomitant]
     Active Substance: OMEPRAZOLE
  11. BUTICATET/LF [Concomitant]
  12. DICYCLOMINE 20MG TABLET [Suspect]
     Active Substance: DICYCLOMINE HYDROCHLORIDE
     Indication: GASTROOESOPHAGEAL REFLUX DISEASE
     Dosage: ?          QUANTITY:40;OTHER FREQUENCY:4;?
     Route: 048
     Dates: start: 201806, end: 201807
  13. ATORVASTATIN [Concomitant]
     Active Substance: ATORVASTATIN

REACTIONS (1)
  - Vision blurred [None]

NARRATIVE: CASE EVENT DATE: 20180701
